FAERS Safety Report 4635183-1 (Version None)
Quarter: 2005Q2

REPORT INFORMATION
  Report Type: 
  Country: None (occurrence: None)
  Receive Date: 20050414
  Receipt Date: 20050405
  Transmission Date: 20051028
  Serious: Yes (Hospitalization)
  Sender: FDA-Public Use
  Company Number: FR-JNJFOC-20050402440

PATIENT
  Age: 80 Year
  Sex: Male

DRUGS (8)
  1. IXPRIM [Suspect]
     Indication: DRUG USE FOR UNKNOWN INDICATION
     Route: 049
  2. CYCLADOL [Suspect]
     Indication: DRUG USE FOR UNKNOWN INDICATION
     Route: 049
  3. BIPRETERAX [Concomitant]
     Route: 049
  4. BIPRETERAX [Concomitant]
     Indication: HYPERTENSIVE NEPHROPATHY
     Route: 049
  5. PIASCLEDINE [Concomitant]
     Route: 065
  6. PIASCLEDINE [Concomitant]
     Route: 065
  7. ART [Concomitant]
     Route: 049
  8. CHONDROSULF [Concomitant]
     Route: 049

REACTIONS (3)
  - CHOLELITHIASIS [None]
  - HYPOTENSION [None]
  - PANCREATITIS ACUTE [None]
